FAERS Safety Report 8986776 (Version 1)
Quarter: 2012Q4

REPORT INFORMATION
  Report Type: 
  Country: GB (occurrence: GB)
  Receive Date: 20121226
  Receipt Date: 20121226
  Transmission Date: 20130627
  Serious: Yes (Hospitalization)
  Sender: FDA-Public Use
  Company Number: GB-WATSON-2012-22540

PATIENT
  Age: 77 Year
  Sex: Male
  Weight: 73 kg

DRUGS (14)
  1. ALLOPURINOL (UNKNOWN) [Suspect]
     Indication: PREMEDICATION
     Dosage: UNK,
     Route: 048
     Dates: start: 20120912
  2. PREDNISOLONE (UNKNOWN) [Suspect]
     Indication: PREMEDICATION
     Dosage: 20 mg, daily
     Route: 048
     Dates: start: 20120912, end: 20120919
  3. OFATUMUMAB [Suspect]
     Indication: CHRONIC LYMPHOCYTIC LEUKAEMIA
     Dosage: 1000 mg, 4 times a week
     Route: 042
     Dates: start: 20120912
  4. BENDAMUSTINE [Suspect]
     Indication: CHRONIC LYMPHOCYTIC LEUKAEMIA
     Dosage: 130 mg, 4 times a week
     Route: 042
     Dates: start: 20120913, end: 20120914
  5. BUPRENORPHINE [Concomitant]
     Indication: PAIN
     Dosage: 10 mcg, 1/week
     Route: 065
  6. NABUMETONE [Concomitant]
     Indication: ARTHRITIS
     Dosage: 500 mg, daily
     Route: 048
     Dates: start: 20020308
  7. CANDESARTAN [Concomitant]
     Indication: HYPERTENSION
     Dosage: 20 mg, daily
     Route: 048
     Dates: start: 20020228
  8. PARACETAMOL [Concomitant]
     Indication: PREMEDICATION
     Dosage: 1000 mg, tid
     Route: 048
  9. CHLORPHENIRAMINE /00072501/ [Concomitant]
     Indication: PREMEDICATION
     Dosage: 10 mg, unknown
     Route: 042
     Dates: start: 20120912, end: 20120912
  10. SIMVASTATIN [Concomitant]
     Indication: HYPERCHOLESTEROLAEMIA
     Dosage: 100 mg, daily
     Route: 048
     Dates: start: 20010817
  11. CIPROFIBRATE [Concomitant]
     Indication: HYPERLIPIDAEMIA
     Dosage: 100 mg, daily
     Route: 048
     Dates: start: 20010427
  12. METOCLOPRAMIDE [Concomitant]
     Indication: PREMEDICATION
     Dosage: 10 mg, tid
     Route: 048
     Dates: start: 20120912, end: 20121009
  13. ACICLOVIR [Concomitant]
     Indication: PREMEDICATION
     Dosage: 400 mg, bid
     Route: 048
     Dates: start: 20120912, end: 20121009
  14. G-CSF [Concomitant]
     Indication: PRODUCT USED FOR UNKNOWN INDICATION
     Dosage: UNK, unknown
     Route: 065

REACTIONS (1)
  - Infected skin ulcer [Not Recovered/Not Resolved]
